FAERS Safety Report 7501169-2 (Version None)
Quarter: 2011Q2

REPORT INFORMATION
  Report Type: 
  Country: None (occurrence: None)
  Receive Date: 20110524
  Receipt Date: 20100706
  Transmission Date: 20111010
  Serious: No
  Sender: FDA-Public Use
  Company Number: US-NOVEN-ALL1-2010-03728

PATIENT

DRUGS (3)
  1. HYDROXYZINE [Concomitant]
     Dosage: UNK, 1X/DAY:QD
     Route: 048
  2. DAYTRANA [Suspect]
     Dosage: 15 MG, 1X/DAY:QD
     Route: 062
     Dates: start: 20090101
  3. STEROID TOPICAL CREAM [Concomitant]
     Dosage: UNK, UNKNOWN
     Route: 061

REACTIONS (1)
  - DRUG SCREEN POSITIVE [None]
